FAERS Safety Report 24062932 (Version 1)
Quarter: 2024Q3

REPORT INFORMATION
  Report Type: Spontaneous
  Country: PL (occurrence: PL)
  Receive Date: 20240709
  Receipt Date: 20240709
  Transmission Date: 20241016
  Serious: Yes (Other)
  Sender: JOHNSON AND JOHNSON
  Company Number: None

PATIENT
  Age: 30 Year
  Sex: Female

DRUGS (4)
  1. RISPERIDONE [Suspect]
     Active Substance: RISPERIDONE
     Indication: Schizophrenia
     Route: 065
  2. RISPERIDONE [Suspect]
     Active Substance: RISPERIDONE
  3. RISPERIDONE [Suspect]
     Active Substance: RISPERIDONE
  4. RISPERIDONE [Suspect]
     Active Substance: RISPERIDONE

REACTIONS (11)
  - Diarrhoea [Unknown]
  - Weight decreased [Unknown]
  - Cardiac disorder [Unknown]
  - Dehydration [Unknown]
  - Blood pressure abnormal [Unknown]
  - Weight decreased [Unknown]
  - Dysmenorrhoea [Unknown]
  - Musculoskeletal chest pain [Unknown]
  - Dental restoration failure [Unknown]
  - Headache [Unknown]
  - Osteonecrosis [Unknown]
